FAERS Safety Report 5978611-1 (Version None)
Quarter: 2008Q4

REPORT INFORMATION
  Report Type: 
  Country: None (occurrence: None)
  Receive Date: 20081204
  Receipt Date: 20081203
  Transmission Date: 20090506
  Serious: Yes (Other)
  Sender: FDA-Public Use
  Company Number: D0059725A

PATIENT
  Age: 48 Year
  Sex: Male
  Weight: 60 kg

DRUGS (4)
  1. TRIZIVIR [Suspect]
     Route: 048
     Dates: start: 20081201, end: 20081201
  2. ALCOHOL [Suspect]
     Route: 065
     Dates: start: 20081201, end: 20081201
  3. IBUPROFEN TABLETS [Suspect]
     Dosage: 3200MG SINGLE DOSE
     Route: 048
     Dates: start: 20081201, end: 20081201
  4. ZOPICLON [Suspect]
     Dosage: 60MG SINGLE DOSE
     Route: 048
     Dates: start: 20081201, end: 20081201

REACTIONS (3)
  - FATIGUE [None]
  - INTENTIONAL OVERDOSE [None]
  - SUICIDE ATTEMPT [None]
